FAERS Safety Report 5097475-4 (Version None)
Quarter: 2006Q3

REPORT INFORMATION
  Report Type: 
  Country: None (occurrence: None)
  Receive Date: 20060901
  Receipt Date: 20060815
  Transmission Date: 20061208
  Serious: Yes (Hospitalization)
  Sender: FDA-Public Use
  Company Number: US200601003910

PATIENT
  Age: 46 Year
  Sex: Male
  Weight: 136.1 kg

DRUGS (2)
  1. ZYPREXA [Suspect]
     Indication: BIPOLAR DISORDER
     Dosage: SEE IMAGE
     Route: 048
     Dates: start: 19970101, end: 20050801
  2. PROZAC [Concomitant]

REACTIONS (3)
  - BALANCE DISORDER [None]
  - DIABETES MELLITUS NON-INSULIN-DEPENDENT [None]
  - HAEMATOMA [None]
